FAERS Safety Report 4449386-2 (Version None)
Quarter: 2004Q3

REPORT INFORMATION
  Report Type: 
  Country: None (occurrence: None)
  Receive Date: 20040913
  Receipt Date: 20040831
  Transmission Date: 20050211
  Serious: Yes (Other)
  Sender: FDA-Public Use
  Company Number: FLUV00304003016

PATIENT
  Age: 67 Year
  Sex: Female

DRUGS (4)
  1. FLUVOXAMINE MALEATE [Suspect]
     Indication: DEPRESSION
     Dosage: 100 MG DAILY PO
     Route: 048
     Dates: start: 20040823
  2. MEILAX (ETHYL LOFLAZEPATE) [Concomitant]
  3. DOGMATYL (SULPIRIDE) [Concomitant]
  4. TIZANIDINE HCL [Concomitant]

REACTIONS (2)
  - FALL [None]
  - HYPOTENSION [None]
